FAERS Safety Report 4502317-9 (Version None)
Quarter: 2004Q4

REPORT INFORMATION
  Report Type: 
  Country: None (occurrence: None)
  Receive Date: 20041116
  Receipt Date: 20040916
  Transmission Date: 20050328
  Serious: Yes (Death)
  Sender: FDA-Public Use
  Company Number: NO-GLAXOSMITHKLINE-B0346106A

PATIENT
  Sex: Female

DRUGS (9)
  1. LEUKERAN [Suspect]
  2. SALAZOPYRIN [Concomitant]
  3. METHOTREXATE [Concomitant]
  4. IMUREL [Concomitant]
  5. MYOCRISIN [Concomitant]
  6. UNKNOWN DRUG [Concomitant]
  7. SANDIMMUNE [Concomitant]
  8. ENBREL [Concomitant]
  9. REMICADE [Concomitant]

REACTIONS (2)
  - AMYLOIDOSIS [None]
  - LEUKAEMIA [None]
